FAERS Safety Report 13637237 (Version 1)
Quarter: 2017Q2

REPORT INFORMATION
  Report Type: Spontaneous
  Country: GB (occurrence: GB)
  Receive Date: 20170609
  Receipt Date: 20170609
  Transmission Date: 20170830
  Serious: Yes (Life-Threatening, Hospitalization)
  Sender: FDA-Public Use
  Company Number: GB-B. BRAUN MEDICAL INC.-2021740

PATIENT
  Age: 31 Year
  Sex: Female
  Weight: 85.9 kg

DRUGS (12)
  1. VOLTAROL [Suspect]
     Active Substance: DICLOFENAC SODIUM
     Route: 054
     Dates: start: 20160509, end: 20160509
  2. OVITRELLE (CHORIOGONADOTROPHIN ALFA (RCH)) [Concomitant]
  3. TEMAZEPAM. [Suspect]
     Active Substance: TEMAZEPAM
     Route: 048
     Dates: start: 20160509, end: 20160509
  4. FENTANYL. [Suspect]
     Active Substance: FENTANYL
     Route: 042
     Dates: start: 20160509, end: 20160509
  5. SUPRECUR (BUSERELIN ACETATE) [Concomitant]
  6. LIDOCAINE. [Suspect]
     Active Substance: LIDOCAINE
     Indication: LOCAL ANAESTHESIA
     Route: 030
     Dates: start: 20160509, end: 20160509
  7. METRONIDAZOLE. [Suspect]
     Active Substance: METRONIDAZOLE
     Route: 054
     Dates: start: 20160509, end: 20160509
  8. AMOXICILLIN AND CLAVULANATE POTASSIUM [Suspect]
     Active Substance: AMOXICILLIN\CLAVULANATE POTASSIUM
     Route: 042
     Dates: start: 20160509, end: 20160509
  9. PENICILLIN NOS [Concomitant]
     Active Substance: PENICILLIN
     Route: 048
  10. PREDNISOLONE. [Concomitant]
     Active Substance: PREDNISOLONE
     Route: 048
  11. MIDAZOLAM [Suspect]
     Active Substance: MIDAZOLAM HYDROCHLORIDE
     Route: 042
     Dates: start: 20160509, end: 20160509
  12. GONAL-F (HUMAN RECOMBINANT FOLLICLE STIMULATING HORMONE) [Concomitant]

REACTIONS (1)
  - Anaphylactic reaction [Recovered/Resolved]

NARRATIVE: CASE EVENT DATE: 20160509
